FAERS Safety Report 10232992 (Version 2)
Quarter: 2014Q2

REPORT INFORMATION
  Report Type: Spontaneous
  Country: US (occurrence: US)
  Receive Date: 20140612
  Receipt Date: 20140627
  Transmission Date: 20141212
  Serious: No
  Sender: FDA-Public Use
  Company Number: US-PFIZER INC-2014157325

PATIENT
  Age: 56 Year
  Sex: Female
  Weight: 81.63 kg

DRUGS (8)
  1. LYRICA [Suspect]
     Indication: FIBROMYALGIA
     Dosage: 50 MG, 3X/DAY
     Dates: start: 2002, end: 201405
  2. HYDROCHLOROTHIAZIDE [Suspect]
     Dosage: 25 MG, DAILY
  3. IBUPROFEN [Concomitant]
     Dosage: 800 MG, 3X/DAY
  4. METHADONE [Concomitant]
     Dosage: 20 MG, EVERY 8 HOURS
  5. BACLOFEN [Concomitant]
     Dosage: 10 MG, 3X/DAY
  6. OXYCODONE [Concomitant]
     Dosage: 15 MG, EVERY 4 HRS
  7. VALIUM [Concomitant]
     Dosage: 10 MG, 4X/DAY
  8. MICARDIS HCT [Concomitant]
     Dosage: HYDROCHLOROTHIAZIDE 25 MG/ TELMISARTAN 80 MG DAILY

REACTIONS (2)
  - Swelling [Not Recovered/Not Resolved]
  - Joint swelling [Unknown]
